FAERS Safety Report 4724435-2 (Version None)
Quarter: 2005Q3

REPORT INFORMATION
  Report Type: 
  Country: None (occurrence: None)
  Receive Date: 20050721
  Receipt Date: 20050708
  Transmission Date: 20060218
  Serious: Yes (Hospitalization)
  Sender: FDA-Public Use
  Company Number: 2005S1000159

PATIENT
  Age: 61 Year
  Sex: Female
  Weight: 73 kg

DRUGS (4)
  1. ACITRETIN (ACITRETIN) [Suspect]
     Indication: LICHEN PLANUS
     Dosage: 10 MG; QD; PO
     Route: 048
     Dates: start: 20050301, end: 20050501
  2. PREDNISOLONE [Concomitant]
  3. METOPROLOL SUCCINATE [Concomitant]
  4. ATACAND [Concomitant]

REACTIONS (1)
  - GRAND MAL CONVULSION [None]
